FAERS Safety Report 12512221 (Version 1)
Quarter: 2016Q2

REPORT INFORMATION
  Report Type: Spontaneous
  Country: US (occurrence: None)
  Receive Date: 20160629
  Receipt Date: 20160629
  Transmission Date: 20160815
  Serious: Yes (Death)
  Sender: FDA-Public Use
  Company Number: None

PATIENT
  Age: 61 Year
  Sex: Male

DRUGS (2)
  1. MILRINONE LACTATE. [Suspect]
     Active Substance: MILRINONE LACTATE
     Indication: CARDIAC FAILURE
     Route: 042
     Dates: start: 20140729, end: 20140730
  2. TYLENOL [Concomitant]
     Active Substance: ACETAMINOPHEN

REACTIONS (10)
  - Device failure [None]
  - Chest pain [None]
  - Pulse absent [None]
  - Heart rate increased [None]
  - Fall [None]
  - Tachycardia [None]
  - Hypotension [None]
  - Staring [None]
  - Musculoskeletal stiffness [None]
  - Myocardial infarction [None]

NARRATIVE: CASE EVENT DATE: 20140730
